FAERS Safety Report 20825321 (Version 7)
Quarter: 2022Q4

REPORT INFORMATION
  Report Type: Spontaneous
  Country: US (occurrence: US)
  Receive Date: 20220513
  Receipt Date: 20221222
  Transmission Date: 20230112
  Serious: Yes (Other)
  Sender: FDA-Public Use
  Company Number: US-BRISTOL-MYERS SQUIBB COMPANY-2022-035360

PATIENT
  Age: 73 Year
  Sex: Female

DRUGS (4)
  1. ORENCIA [Suspect]
     Active Substance: ABATACEPT
     Indication: Rheumatoid arthritis
     Route: 058
  2. ORENCIA [Suspect]
     Active Substance: ABATACEPT
     Route: 058
  3. CELEBREX [Concomitant]
     Active Substance: CELECOXIB
     Indication: Product used for unknown indication
  4. METHOTREXATE [Concomitant]
     Active Substance: METHOTREXATE
     Indication: Product used for unknown indication

REACTIONS (17)
  - Cerebrovascular accident [Unknown]
  - Cerebral haemorrhage [Unknown]
  - Condition aggravated [Unknown]
  - Pain [Unknown]
  - Cardiac disorder [Unknown]
  - Furuncle [Unknown]
  - Dizziness [Unknown]
  - Abdominal discomfort [Unknown]
  - Balance disorder [Unknown]
  - Arthralgia [Unknown]
  - Drug ineffective [Unknown]
  - Herpes zoster [Unknown]
  - Staphylococcal infection [Unknown]
  - Headache [Unknown]
  - Cough [Unknown]
  - Pyrexia [Unknown]
  - Oropharyngeal pain [Unknown]

NARRATIVE: CASE EVENT DATE: 20211015
